FAERS Safety Report 5259450-6 (Version None)
Quarter: 2007Q1

REPORT INFORMATION
  Report Type: 
  Country: None (occurrence: None)
  Receive Date: 20070305
  Receipt Date: 20070221
  Transmission Date: 20070707
  Serious: Yes (Disabling, Other)
  Sender: FDA-Public Use
  Company Number: 011015

PATIENT
  Age: 40 Year
  Sex: Female
  Weight: 45.4 kg

DRUGS (3)
  1. ANTABUSE [Suspect]
     Indication: ALCOHOLISM
     Dosage: 250 MG, BID, ORAL
     Route: 048
     Dates: start: 20050101, end: 20070220
  2. SEROQUEL [Concomitant]
  3. THYROXIN T3 (LEVOTHYROXINE SODIUM, LIOTHYRONINE) [Concomitant]

REACTIONS (7)
  - AKATHISIA [None]
  - ASTHENIA [None]
  - BALANCE DISORDER [None]
  - DYSSTASIA [None]
  - GAIT DISTURBANCE [None]
  - HYPOAESTHESIA [None]
  - POLYNEUROPATHY [None]
